FAERS Safety Report 19669735 (Version 2)
Quarter: 2021Q3

REPORT INFORMATION
  Report Type: Report from Study
  Country: IL (occurrence: IL)
  Receive Date: 20210806
  Receipt Date: 20210903
  Transmission Date: 20211014
  Serious: Yes (Other)
  Sender: FDA-Public Use
  Company Number: IL-IPSEN BIOPHARMACEUTICALS, INC.-2019-26299

PATIENT
  Age: 74 Year
  Sex: Female

DRUGS (21)
  1. TRITACE [Concomitant]
     Active Substance: RAMIPRIL
     Indication: HYPERLIPIDAEMIA
  2. AZARGA [Concomitant]
     Active Substance: BRINZOLAMIDE\TIMOLOL MALEATE
  3. SOMATULINE AUTOGEL [Suspect]
     Active Substance: LANREOTIDE ACETATE
     Indication: NEUROENDOCRINE TUMOUR
     Route: 058
     Dates: start: 20171210, end: 2019
  4. CARDILOC [Concomitant]
     Active Substance: BISOPROLOL FUMARATE
  5. ATACAND [Concomitant]
     Active Substance: CANDESARTAN CILEXETIL
  6. CIPRALEX [Concomitant]
     Active Substance: ESCITALOPRAM OXALATE
  7. TOVIAZ [Concomitant]
     Active Substance: FESOTERODINE FUMARATE
  8. BROTIZOLAM?TEVA [Concomitant]
  9. GLUCOMINE [Concomitant]
  10. OMEPRADEX [Concomitant]
     Active Substance: OMEPRAZOLE
     Indication: HYPERLIPIDAEMIA
  11. EVISTA [Concomitant]
     Active Substance: RALOXIFENE HYDROCHLORIDE
     Indication: HYPERLIPIDAEMIA
  12. FEXOFENADINE [Concomitant]
     Active Substance: FEXOFENADINE HYDROCHLORIDE
  13. NEXIUM [Concomitant]
     Active Substance: ESOMEPRAZOLE MAGNESIUM
  14. SOMATULINE AUTOGEL [Suspect]
     Active Substance: LANREOTIDE ACETATE
     Route: 058
     Dates: start: 20210831
  15. STATOR [Concomitant]
  16. NORMITEN [Concomitant]
     Active Substance: ATENOLOL
     Indication: HYPERLIPIDAEMIA
  17. VABEN [Concomitant]
     Active Substance: OXAZEPAM
  18. SIMVASTATIN. [Concomitant]
     Active Substance: SIMVASTATIN
     Indication: HYPERLIPIDAEMIA
  19. SOMATULINE AUTOGEL [Suspect]
     Active Substance: LANREOTIDE ACETATE
     Route: 058
     Dates: end: 2021
  20. LIPANOR [Concomitant]
     Active Substance: CIPROFIBRATE
     Indication: HYPERLIPIDAEMIA
  21. GANFORT [Concomitant]
     Active Substance: BIMATOPROST\TIMOLOL

REACTIONS (6)
  - Cholelithiasis [Recovering/Resolving]
  - Oropharyngeal pain [Unknown]
  - Product dose omission issue [Unknown]
  - Oral fungal infection [Not Recovered/Not Resolved]
  - Biliary colic [Recovering/Resolving]
  - Body temperature increased [Unknown]

NARRATIVE: CASE EVENT DATE: 2019
